FAERS Safety Report 14157251 (Version 1)
Quarter: 2017Q4

REPORT INFORMATION
  Report Type: Spontaneous
  Country: US (occurrence: US)
  Receive Date: 20171103
  Receipt Date: 20171103
  Transmission Date: 20180321
  Serious: Yes (Hospitalization, Other)
  Sender: FDA-Public Use
  Company Number: US-WEST-WARD PHARMACEUTICALS CORP.-US-H14001-17-04206

PATIENT
  Age: 62 Year
  Sex: Male

DRUGS (1)
  1. HYDROMORPHONE [Suspect]
     Active Substance: HYDROMORPHONE
     Indication: PRODUCT USED FOR UNKNOWN INDICATION
     Route: 013

REACTIONS (6)
  - Arterial occlusive disease [Unknown]
  - Peripheral artery thrombosis [Unknown]
  - Intentional product use issue [Recovered/Resolved]
  - Arterial wall hypertrophy [Unknown]
  - Dry gangrene [Recovered/Resolved with Sequelae]
  - Drug abuse [Recovered/Resolved]
